FAERS Safety Report 23875173 (Version 2)
Quarter: 2024Q2

REPORT INFORMATION
  Report Type: Spontaneous
  Country: ES (occurrence: ES)
  Receive Date: 20240520
  Receipt Date: 20240521
  Transmission Date: 20240715
  Serious: Yes (Hospitalization)
  Sender: FDA-Public Use
  Company Number: ES-ROCHE-3552555

PATIENT
  Age: 77 Year
  Sex: Male
  Weight: 60 kg

DRUGS (31)
  1. CARBOPLATIN [Suspect]
     Active Substance: CARBOPLATIN
     Indication: Lung cancer metastatic
     Dosage: START DATE OF MOST RECENT DOSE OF STUDY DRUG 830 MG PRIOR TO  AE AND 350 MG PRIOR TO SAE 21-SEP-2023
     Route: 042
     Dates: start: 20230720
  2. PEMETREXED [Suspect]
     Active Substance: PEMETREXED
     Dosage: 830 MG
     Route: 042
     Dates: start: 20230720
  3. PEMETREXED [Suspect]
     Active Substance: PEMETREXED
     Indication: Lung cancer metastatic
     Dosage: 320 INHALATION
     Route: 065
     Dates: start: 20150712
  4. ASPIRIN [Concomitant]
     Active Substance: ASPIRIN
     Indication: Product used for unknown indication
     Dosage: 100 CAPSULE
     Route: 065
     Dates: start: 20150611
  5. ASPIRIN [Concomitant]
     Active Substance: ASPIRIN
     Dosage: 100 CAPSULE
     Route: 065
     Dates: start: 20150611
  6. ALLOPURINOL [Concomitant]
     Active Substance: ALLOPURINOL
     Indication: Gout
     Dosage: 300 CAPSULE
     Route: 065
     Dates: start: 20220711
  7. ALLOPURINOL [Concomitant]
     Active Substance: ALLOPURINOL
     Dosage: 300 CAPSULE
     Route: 065
     Dates: start: 20220711
  8. ATEZOLIZUMAB [Concomitant]
     Active Substance: ATEZOLIZUMAB
     Indication: Lung cancer metastatic
     Dosage: START DATE OF MOST RECENT DOSE OF STUDY DRUG PRIOR TO SAE18-APR-2024
     Route: 065
     Dates: start: 20230720
  9. ATEZOLIZUMAB [Concomitant]
     Active Substance: ATEZOLIZUMAB
     Dosage: START DATE OF MOST RECENT DOSE OF STUDY DRUG PRIOR TO SAE18-APR-2024
     Route: 065
     Dates: start: 20230720
  10. CEFDITOREN [Concomitant]
     Active Substance: CEFDITOREN
     Indication: Product used for unknown indication
     Dosage: 400 MG
     Route: 065
     Dates: start: 20240422, end: 20240427
  11. FUROSEMIDE [Concomitant]
     Active Substance: FUROSEMIDE
     Indication: Respiratory tract infection
     Dosage: 20 MG
     Route: 065
     Dates: start: 20240418
  12. HYDROCHLOROTHIAZIDE [Concomitant]
     Active Substance: HYDROCHLOROTHIAZIDE
     Indication: Lung cancer metastatic
     Dosage: 25 CAPSULE
     Route: 065
     Dates: start: 20170611
  13. HYDROCHLOROTHIAZIDE [Concomitant]
     Active Substance: HYDROCHLOROTHIAZIDE
     Dosage: 25 CAPSULE
     Route: 065
     Dates: start: 20170611
  14. METOCLOPRAMIDE HYDROCHLORIDE [Concomitant]
     Active Substance: METOCLOPRAMIDE HYDROCHLORIDE
     Indication: Vomiting
     Dosage: 16.000MG TIW
     Route: 065
     Dates: start: 20240216
  15. METOCLOPRAMIDE HYDROCHLORIDE [Concomitant]
     Active Substance: METOCLOPRAMIDE HYDROCHLORIDE
     Indication: Nausea
  16. OMEPRAZOLE [Concomitant]
     Active Substance: DONEPEZIL HYDROCHLORIDE\OMEPRAZOLE\OMEPRAZOLE MAGNESIUM
     Indication: Dyspepsia
     Dosage: 20 CAPSULE
     Route: 065
     Dates: start: 20150611
  17. OMEPRAZOLE [Concomitant]
     Active Substance: DONEPEZIL HYDROCHLORIDE\OMEPRAZOLE\OMEPRAZOLE MAGNESIUM
     Dosage: 20 CAPSULE
     Route: 065
     Dates: start: 20150611
  18. ONDANSETRON [Concomitant]
     Active Substance: ONDANSETRON
     Indication: Nausea
     Dosage: 8.000MG TIW
     Route: 065
     Dates: start: 20231011
  19. ONDANSETRON [Concomitant]
     Active Substance: ONDANSETRON
     Indication: Vomiting
     Dosage: 8.000MG TIW
     Route: 065
     Dates: start: 20231011
  20. PEMBROLIZUMAB [Concomitant]
     Active Substance: PEMBROLIZUMAB
     Indication: Lung cancer metastatic
     Dosage: START DATE OF MOST RECENT DOSE OF STUDY DRUG PRIOR TO SAE 18-APR-2024
     Route: 065
     Dates: start: 20230720
  21. PEMBROLIZUMAB [Concomitant]
     Active Substance: PEMBROLIZUMAB
     Dosage: START DATE OF MOST RECENT DOSE OF STUDY DRUG PRIOR TO SAE 18-APR-2024
     Route: 065
     Dates: start: 20230720
  22. RILAST [Concomitant]
     Active Substance: BUDESONIDE\FORMOTEROL
     Indication: Product used for unknown indication
     Route: 065
  23. RILAST [Concomitant]
     Active Substance: BUDESONIDE\FORMOTEROL
     Indication: Product used for unknown indication
     Route: 065
  24. ROFLUMILAST [Concomitant]
     Active Substance: ROFLUMILAST
     Indication: Product used for unknown indication
     Dosage: 500 CAPSULE
     Route: 065
     Dates: start: 20150712
  25. ROFLUMILAST [Concomitant]
     Active Substance: ROFLUMILAST
     Dosage: 500 CAPSULE
     Route: 065
     Dates: start: 20150712
  26. ALBUTEROL [Concomitant]
     Active Substance: ALBUTEROL
     Indication: Product used for unknown indication
     Dosage: 100.000MG QD
     Route: 065
     Dates: start: 20150712
  27. ALBUTEROL [Concomitant]
     Active Substance: ALBUTEROL
     Dosage: 100.000MG QD
     Route: 065
     Dates: start: 20150712
  28. SPIRIVA [Concomitant]
     Active Substance: TIOTROPIUM BROMIDE MONOHYDRATE
     Indication: Product used for unknown indication
     Route: 065
     Dates: start: 20150711
  29. SPIRIVA [Concomitant]
     Active Substance: TIOTROPIUM BROMIDE MONOHYDRATE
     Route: 065
     Dates: start: 20150711
  30. TIRAGOLUMAB [Concomitant]
     Active Substance: TIRAGOLUMAB
     Indication: Lung cancer metastatic
     Dosage: START DATE OF MOST RECENT DOSE OF STUDY DRUG PRIOR TO AE/SAE 18-APR-2024
     Route: 065
     Dates: start: 20230720
  31. TIRAGOLUMAB [Concomitant]
     Active Substance: TIRAGOLUMAB
     Dosage: START DATE OF MOST RECENT DOSE OF STUDY DRUG PRIOR TO AE/SAE 18-APR-2024
     Route: 065
     Dates: start: 20230720

REACTIONS (1)
  - Dyspnoea [Recovered/Resolved]

NARRATIVE: CASE EVENT DATE: 20240422
